FAERS Safety Report 9469178 (Version 1)
Quarter: 2013Q3

REPORT INFORMATION
  Report Type: Spontaneous
  Country: US (occurrence: US)
  Receive Date: 20130821
  Receipt Date: 20130821
  Transmission Date: 20140515
  Serious: No
  Sender: FDA-Public Use
  Company Number: US-NOVEN-13US007207

PATIENT
  Age: 38 Year
  Sex: Female

DRUGS (2)
  1. MINIVELLE [Suspect]
     Indication: HOT FLUSH
     Dosage: 0.1MG
     Route: 062
     Dates: start: 20130520
  2. MINIVELLE [Suspect]
     Dosage: 0.1MG AND 0.0375MG TWICE WEEKLY
     Route: 062

REACTIONS (3)
  - Hot flush [Not Recovered/Not Resolved]
  - Wrong technique in drug usage process [Not Recovered/Not Resolved]
  - Drug prescribing error [None]
